FAERS Safety Report 8609336-1 (Version None)
Quarter: 2012Q3

REPORT INFORMATION
  Report Type: 
  Country: None (occurrence: None)
  Receive Date: 20120821
  Receipt Date: 20120817
  Transmission Date: 20120928
  Serious: Yes (Death, Other)
  Sender: FDA-Public Use
  Company Number: PHHY2012MX071923

PATIENT
  Sex: Female

DRUGS (4)
  1. AMARYL [Concomitant]
     Dosage: 1 DF, DAILY
  2. ALENDRONATE SODIUM (REGENESIS) [Concomitant]
     Dosage: 1 DF, DAILY
     Dates: end: 20120401
  3. JUVALIN [Concomitant]
     Dosage: 1 DF, DAILY
     Dates: start: 20110901, end: 20120401
  4. RASILEZ [Suspect]
     Indication: HYPERTENSION
     Dosage: 300 MG, DAILY
     Dates: start: 20100201

REACTIONS (4)
  - RENAL FAILURE CHRONIC [None]
  - FLUID RETENTION [None]
  - DEATH [None]
  - FALL [None]
